FAERS Safety Report 10076357 (Version 1)
Quarter: 2014Q2

REPORT INFORMATION
  Report Type: Spontaneous
  Country: US (occurrence: None)
  Receive Date: 20140410
  Receipt Date: 20140410
  Transmission Date: 20141212
  Serious: Yes (Other)
  Sender: FDA-Public Use
  Company Number: UTC-044824

PATIENT
  Age: 36 Year
  Sex: Female
  Weight: 112 kg

DRUGS (3)
  1. REMODULIN [Suspect]
     Indication: COR PULMONALE CHRONIC
     Dosage: 92.16 UG/KG (0.064 UG/KG, 1 IN 1 MIN),SUBCUTANEOUS
     Route: 041
     Dates: start: 20070401
  2. LETAIRIS [Concomitant]
  3. COUMADIN [Concomitant]

REACTIONS (3)
  - Fracture [None]
  - Back pain [None]
  - Painful respiration [None]
